FAERS Safety Report 15814969 (Version 3)
Quarter: 2019Q4

REPORT INFORMATION
  Report Type: Spontaneous
  Country: US (occurrence: US)
  Receive Date: 20190112
  Receipt Date: 20191112
  Transmission Date: 20200122
  Serious: Yes (Hospitalization)
  Sender: FDA-Public Use
  Company Number: US-B.I. PHARMACEUTICALS,INC./RIDGEFIELD-2019-BI-000764

PATIENT
  Age: 60 Year
  Sex: Female

DRUGS (20)
  1. LEVOTHYROXINE SODIUM. [Concomitant]
     Active Substance: LEVOTHYROXINE SODIUM
     Indication: PRODUCT USED FOR UNKNOWN INDICATION
     Dosage: DISP: 90 TABLET REFILL X 1 SIG: TAKE 1 TABLET BY ORAL ROUTE ONCE DAILY X 90 DAYS
     Route: 048
  2. PROLIA [Concomitant]
     Active Substance: DENOSUMAB
     Indication: PRODUCT USED FOR UNKNOWN INDICATION
     Dosage: 60MG/ML
     Route: 058
  3. IRBESARTAN. [Concomitant]
     Active Substance: IRBESARTAN
     Indication: PRODUCT USED FOR UNKNOWN INDICATION
     Route: 048
  4. LEVOTHYROXINE SODIUM. [Concomitant]
     Active Substance: LEVOTHYROXINE SODIUM
     Route: 048
  5. VICTOZA [Concomitant]
     Active Substance: LIRAGLUTIDE
     Indication: PRODUCT USED FOR UNKNOWN INDICATION
     Route: 048
  6. ASPIRIN. [Concomitant]
     Active Substance: ASPIRIN
     Indication: PRODUCT USED FOR UNKNOWN INDICATION
     Dosage: 90 TABLET REFILL X 6 81G: TAKE 1 TABLET BY ORAL ROUTE ONCE DAILY1 X 90 DAYS
     Route: 048
  7. METFORMIN HYDROCHLORIDE. [Concomitant]
     Active Substance: METFORMIN HYDROCHLORIDE
     Indication: PRODUCT USED FOR UNKNOWN INDICATION
     Dosage: DISP:180 TABLET REFILL X 1 81G: TAKE 1 TABLET BY ORAL ROUTE TWICE DAILY, X 90 DAYS SUBSTITUTION
     Route: 048
  8. VITAMIN D3 [Concomitant]
     Active Substance: CHOLECALCIFEROL
     Indication: PRODUCT USED FOR UNKNOWN INDICATION
     Dosage: DISP: 13 CAPSULE REFILL X 1 SIG: TAKE 1 CAPSULE BY ORAL ROUTE ONCE WEEKLY, X 90 DAYS
     Route: 048
  9. NOVOLOG [Concomitant]
     Active Substance: INSULIN ASPART
     Indication: PRODUCT USED FOR UNKNOWN INDICATION
     Route: 065
  10. OMEGA 3 [FISH OIL] [Concomitant]
     Active Substance: FISH OIL
     Indication: PRODUCT USED FOR UNKNOWN INDICATION
     Dosage: DISP: 180 CAPSULE REFILL X 1 SIG: TAKE 2 CAPSULE BY ORAL ROUTE ONCE DAILY X 90 DAYS SUBSTITUTION
     Route: 048
  11. GLIPIZIDE. [Concomitant]
     Active Substance: GLIPIZIDE
     Indication: PRODUCT USED FOR UNKNOWN INDICATION
     Dosage: DISP: 180 TABLET REFILL X SIG: TAKE 1 TABLET BY ORAL ROUTE TWICE DAILY, X 90 DAYS
     Route: 048
  12. VALSARTAN AND HYDROCHLOROTHIAZIDE [Concomitant]
     Active Substance: HYDROCHLOROTHIAZIDE\VALSARTAN
     Indication: PRODUCT USED FOR UNKNOWN INDICATION
     Dosage: 160MG-12.5MG DISP: 90 TABLET REFILL X O SIG: TAKE 1 TABLET BY ORAL ROUTE ONCE DAILY, X 90 DAYS
     Route: 048
  13. AVALIDE [Concomitant]
     Active Substance: HYDROCHLOROTHIAZIDE\IRBESARTAN
     Indication: PRODUCT USED FOR UNKNOWN INDICATION
     Dosage: 150MG-125MG  DISP: 90 TABLET REFILL X 1 SIG: TAKE 1 TABLET BY ORAL ROUTE ONCE DAILY, X 90 DAYS
     Route: 048
  14. GABAPENTIN. [Concomitant]
     Active Substance: GABAPENTIN
     Indication: PRODUCT USED FOR UNKNOWN INDICATION
     Dosage: DISP:0 CAPSULE REFILL X 6 SIG: TAKE 1 CAPSULE BY ORAL ONCE DAILY
     Route: 048
  15. LANTUS [Concomitant]
     Active Substance: INSULIN GLARGINE
     Indication: PRODUCT USED FOR UNKNOWN INDICATION
     Dosage: 100UNITS/ML DISP: 2VIAL REFILL X 1 SIC: INJECT 25 UNIT BY SUBCUTANEOUS ROUTE AT BEDTIME, X 90 DAYS
     Route: 058
  16. JARDIANCE [Suspect]
     Active Substance: EMPAGLIFLOZIN
     Indication: TYPE 2 DIABETES MELLITUS
     Route: 048
     Dates: start: 20180619, end: 20181108
  17. ROSUVASTATIN. [Concomitant]
     Active Substance: ROSUVASTATIN
     Indication: PRODUCT USED FOR UNKNOWN INDICATION
     Route: 048
  18. VIT D [Concomitant]
     Active Substance: VITAMIN D NOS
     Indication: PRODUCT USED FOR UNKNOWN INDICATION
     Route: 065
  19. TRESIBA [Concomitant]
     Active Substance: INSULIN DEGLUDEC
     Indication: PRODUCT USED FOR UNKNOWN INDICATION
     Route: 065
  20. CRESTOR [Concomitant]
     Active Substance: ROSUVASTATIN CALCIUM
     Indication: PRODUCT USED FOR UNKNOWN INDICATION
     Dosage: DISP: 90 TABLET REFILL X 1 SIG: TAKE 1 TABLET BY ORAL ROUTE ONCE DAILY, X 90 DAYS
     Route: 048

REACTIONS (3)
  - Loss of consciousness [Unknown]
  - Dehydration [Recovered/Resolved]
  - Renal impairment [Recovering/Resolving]

NARRATIVE: CASE EVENT DATE: 201812
